FAERS Safety Report 14882912 (Version 4)
Quarter: 2018Q3

REPORT INFORMATION
  Report Type: Spontaneous
  Country: US (occurrence: US)
  Receive Date: 20180511
  Receipt Date: 20180812
  Transmission Date: 20181010
  Serious: Yes (Other)
  Sender: FDA-Public Use
  Company Number: US-009507513-1805USA001369

PATIENT
  Age: 49 Year
  Sex: Female
  Weight: 92.06 kg

DRUGS (4)
  1. NUVARING [Suspect]
     Active Substance: ETHINYL ESTRADIOL\ETONOGESTREL
     Indication: CONTRACEPTION
  2. METFORMIN [Concomitant]
     Active Substance: METFORMIN HYDROCHLORIDE
     Dosage: UNK
     Dates: start: 2008
  3. NUVARING [Suspect]
     Active Substance: ETHINYL ESTRADIOL\ETONOGESTREL
     Indication: MENSTRUATION IRREGULAR
     Dosage: 3 WEEKS IN, 1 WEEK OUT
     Route: 066
     Dates: start: 2008, end: 2016
  4. OMEGA?3 MARINE TRIGLYCERIDES [Concomitant]
     Active Substance: FISH OIL
     Dosage: UNK
     Dates: start: 2008

REACTIONS (16)
  - Urinary tract infection enterococcal [Unknown]
  - Incorrect route of drug administration [Unknown]
  - Pain [Unknown]
  - Menorrhagia [Unknown]
  - Medical device site discomfort [Unknown]
  - Frequent bowel movements [Not Recovered/Not Resolved]
  - General anaesthesia [Recovered/Resolved]
  - Abdominal pain [Recovered/Resolved]
  - Cystitis haemorrhagic [Not Recovered/Not Resolved]
  - Streptococcal urinary tract infection [Unknown]
  - Bladder discomfort [Recovered/Resolved]
  - Urinary tract infection [Not Recovered/Not Resolved]
  - Uterine dilation and curettage [Unknown]
  - Product use in unapproved indication [Unknown]
  - Haemorrhage urinary tract [Unknown]
  - Abdominal wall operation [Unknown]

NARRATIVE: CASE EVENT DATE: 2008
